FAERS Safety Report 24942039 (Version 1)
Quarter: 2025Q1

REPORT INFORMATION
  Report Type: Spontaneous
  Country: JP (occurrence: JP)
  Receive Date: 20250207
  Receipt Date: 20250207
  Transmission Date: 20250409
  Serious: Yes (Hospitalization, Other)
  Sender: PFIZER
  Company Number: JP-PFIZER INC-PV202500011033

PATIENT
  Age: 3 Year
  Sex: Female

DRUGS (4)
  1. MEROPENEM [Suspect]
     Active Substance: MEROPENEM
     Indication: Meningitis pneumococcal
     Route: 041
  2. MEROPENEM [Suspect]
     Active Substance: MEROPENEM
     Indication: Meningitis bacterial
  3. CEFTRIAXONE [Suspect]
     Active Substance: CEFTRIAXONE
     Indication: Meningitis bacterial
  4. DEXAMETHASONE [Concomitant]
     Active Substance: DEXAMETHASONE
     Indication: Meningitis bacterial

REACTIONS (1)
  - Pyrexia [Recovering/Resolving]
